FAERS Safety Report 16350259 (Version 1)
Quarter: 2019Q2

REPORT INFORMATION
  Report Type: Spontaneous
  Country: RO (occurrence: RO)
  Receive Date: 20190524
  Receipt Date: 20190524
  Transmission Date: 20190711
  Serious: Yes (Hospitalization, Other)
  Sender: FDA-Public Use
  Company Number: RO-SUN PHARMACEUTICAL INDUSTRIES LTD-2019R1-208596

PATIENT
  Age: 26 Day
  Sex: Male
  Weight: 3.08 kg

DRUGS (2)
  1. PARACETAMOL [Suspect]
     Active Substance: ACETAMINOPHEN
     Indication: PYREXIA
     Dosage: 1.5 MILLILITER, UNK
     Route: 065
  2. METHYLDOPA. [Suspect]
     Active Substance: METHYLDOPA
     Indication: HYPERTENSION
     Dosage: UNK
     Route: 064

REACTIONS (4)
  - Haemolytic anaemia [Unknown]
  - Jaundice [Unknown]
  - Foetal exposure during pregnancy [Unknown]
  - Premature baby [Unknown]
